FAERS Safety Report 25864284 (Version 2)
Quarter: 2025Q4

REPORT INFORMATION
  Report Type: Spontaneous
  Country: US (occurrence: US)
  Receive Date: 20250930
  Receipt Date: 20251209
  Transmission Date: 20260117
  Serious: No
  Sender: BLUEPRINT MEDICINES
  Company Number: US-Blueprint Medicines Corporation-2025-AER-02117

PATIENT
  Age: 50 Year
  Sex: Male

DRUGS (2)
  1. AYVAKIT [Suspect]
     Active Substance: AVAPRITINIB
     Indication: Haematopoietic neoplasm
     Route: 065
  2. AYVAKIT [Suspect]
     Active Substance: AVAPRITINIB
     Route: 048

REACTIONS (2)
  - Weight decreased [Unknown]
  - Blood pressure decreased [Unknown]
